FAERS Safety Report 19164960 (Version 1)
Quarter: 2021Q2

REPORT INFORMATION
  Report Type: Spontaneous
  Country: DE (occurrence: DE)
  Receive Date: 20210421
  Receipt Date: 20210421
  Transmission Date: 20210717
  Serious: Yes (Death, Hospitalization, Other)
  Sender: FDA-Public Use
  Company Number: DE-TEVA-2021-DE-1902551

PATIENT
  Age: 81 Year
  Sex: Female

DRUGS (7)
  1. SIMVASTATIN. [Concomitant]
     Active Substance: SIMVASTATIN
     Dosage: 40 MILLIGRAM DAILY; 0?0?1?0
  2. OMEPRAZOL [Concomitant]
     Active Substance: OMEPRAZOLE
     Dosage: 20 MG, AS NEEDED
  3. ENALAPRIL [Concomitant]
     Active Substance: ENALAPRIL
     Dosage: 10 MILLIGRAM DAILY; 1?0?0?0
  4. METAMIZOL [Concomitant]
     Active Substance: METAMIZOLE SODIUM
     Dosage: 500 MG,AS NEEDED
  5. TORASEMID [Suspect]
     Active Substance: TORSEMIDE
     Dosage: 10 MG, 1?1?0?0
  6. ASS 100 [Concomitant]
     Active Substance: ASPIRIN
     Dosage: 100 MILLIGRAM DAILY; 1?0?0?0
  7. BISOPROLOL/HYDROCHLOROTHIAZID [Suspect]
     Active Substance: BISOPROLOL FUMARATE\HYDROCHLOROTHIAZIDE
     Dosage: 1 DOSAGE FORMS DAILY; 5|12.5 MG, 1?0?0?0

REACTIONS (4)
  - Lactic acidosis [Unknown]
  - Electrocardiogram abnormal [Unknown]
  - Electrolyte imbalance [Unknown]
  - Arrhythmia [Unknown]
